FAERS Safety Report 25167547 (Version 2)
Quarter: 2025Q2

REPORT INFORMATION
  Report Type: Report from Study
  Country: US (occurrence: US)
  Receive Date: 20250407
  Receipt Date: 20250421
  Transmission Date: 20250716
  Serious: No
  Sender: SANOFI AVENTIS
  Company Number: US-SA-2025SA098240

PATIENT
  Age: 56 Year
  Sex: Female

DRUGS (1)
  1. DUPIXENT [Suspect]
     Active Substance: DUPILUMAB
     Indication: Dermatitis atopic
     Dosage: 300 MG, QOW
     Route: 058
     Dates: start: 20250311, end: 20250417

REACTIONS (6)
  - Hypertension [Unknown]
  - Tachycardia [Unknown]
  - Contusion [Unknown]
  - Headache [Unknown]
  - Dizziness [Unknown]
  - Erythema [Unknown]

NARRATIVE: CASE EVENT DATE: 20250101
